FAERS Safety Report 5218761-0 (Version None)
Quarter: 2007Q1

REPORT INFORMATION
  Report Type: 
  Country: None (occurrence: None)
  Receive Date: 20070123
  Receipt Date: 20070109
  Transmission Date: 20070707
  Serious: Yes (Other)
  Sender: FDA-Public Use
  Company Number: 2006BI015083

PATIENT
  Age: 48 Year
  Sex: Female

DRUGS (3)
  1. NATALIZUMAB [Suspect]
     Indication: MULTIPLE SCLEROSIS
     Dosage: 300 MG;QM;IV
     Route: 042
     Dates: start: 20060908, end: 20060908
  2. LEVOTHYROXINE SODIUM [Concomitant]
  3. COMBIVENT [Concomitant]

REACTIONS (6)
  - ALOPECIA [None]
  - BRONCHIECTASIS [None]
  - LUNG ABSCESS [None]
  - LYMPHADENOPATHY [None]
  - PULMONARY CAVITATION [None]
  - RESPIRATORY TRACT INFECTION [None]
